FAERS Safety Report 11088839 (Version 1)
Quarter: 2015Q2

REPORT INFORMATION
  Report Type: Spontaneous
  Country: US (occurrence: US)
  Receive Date: 20150504
  Receipt Date: 20150504
  Transmission Date: 20150821
  Serious: Yes (Other)
  Sender: FDA-Public Use
  Company Number: US-TARO-2015TAR00364

PATIENT
  Age: 67 Year
  Sex: Female
  Weight: 53.52 kg

DRUGS (23)
  1. EXCEDRINE MIGRAINE (ASPIRIN-ACETAMINOPHEN-CAFFEINE) [Concomitant]
     Route: 048
  2. SUDAFED [Concomitant]
     Active Substance: PSEUDOEPHEDRINE HYDROCHLORIDE
     Dosage: 30 MG, AS NEEDED
     Route: 048
  3. PHENYTOIN SODIUM EXTENDED [Suspect]
     Active Substance: PHENYTOIN SODIUM
     Dosage: 200 MG, 1X/DAY
     Dates: start: 201309
  4. LIPITOR [Concomitant]
     Active Substance: ATORVASTATIN CALCIUM
     Dosage: 80 MG, 1X/DAY
     Route: 048
  5. ZOLOFT [Concomitant]
     Active Substance: SERTRALINE HYDROCHLORIDE
     Dosage: 50 MG, 1X/DAY
  6. CALCIUM + D [Concomitant]
     Active Substance: CALCIUM\VITAMIN D
     Dosage: 1 TABLETS, 1X/DAY
     Route: 048
  7. VITAMIN D [Concomitant]
     Active Substance: CHOLECALCIFEROL
     Dosage: 20000 U, 1X/DAY
     Route: 048
  8. PHENOBARBITAL. [Concomitant]
     Active Substance: PHENOBARBITAL
     Dosage: 32.4 MG, 3X/DAY
     Route: 048
  9. COZAAR (LOSARTAN) [Concomitant]
     Dosage: 50 MG, 1X/DAY
  10. VITAMIN D2 [Concomitant]
     Active Substance: ERGOCALCIFEROL
     Dosage: 50000 U, 1X/WEEK
  11. VOLTAREN (DICLOFENAC) [Concomitant]
     Dosage: UNK, AS NEEDED
  12. ANTIVERT (MECLIZINE) [Concomitant]
     Dosage: UNK UNK, AS NEEDED
     Route: 048
  13. PHENYTOIN SODIUM EXTENDED [Suspect]
     Active Substance: PHENYTOIN SODIUM
     Indication: SEIZURE
     Dosage: 100 MG, 1X/DAY
     Route: 048
     Dates: start: 201309
  14. MELATONIN [Concomitant]
     Active Substance: MELATONIN
     Dosage: 3 MG, AS NEEDED
     Route: 048
  15. RIBOFLAVIN [Concomitant]
     Active Substance: RIBOFLAVIN
     Dosage: 400 MG, 1X/DAY
     Route: 048
  16. DIFLUCAN [Concomitant]
     Active Substance: FLUCONAZOLE
     Dosage: 150 MG, UNK
  17. ASPIRIN. [Concomitant]
     Active Substance: ASPIRIN
     Dosage: 81 MG, 1X/DAY
     Route: 048
  18. EVISTA (RALOXIFENE) [Concomitant]
     Dosage: 60 MG, 1X/DAY
  19. KEPPRA [Concomitant]
     Active Substance: LEVETIRACETAM
     Dosage: 750 MG, 2X/DAY
     Dates: start: 201409
  20. ETHOSUXIMIDE. [Concomitant]
     Active Substance: ETHOSUXIMIDE
     Dosage: 250 MG, 2X/DAY
  21. PYRIDIUM (PHENAZOPYRIDINE) [Concomitant]
     Dosage: 100 MG, 3X/DAY
  22. VALERIAN [Concomitant]
     Active Substance: VALERIAN
     Dosage: 100 MG, UNK
     Route: 048
  23. PEPCID [Concomitant]
     Active Substance: FAMOTIDINE
     Dosage: 20 MG, 2X/DAY
     Route: 048

REACTIONS (9)
  - Nausea [Recovered/Resolved]
  - Malaise [Recovered/Resolved]
  - Generalised tonic-clonic seizure [Recovered/Resolved]
  - Anticonvulsant drug level below therapeutic [Recovering/Resolving]
  - Dizziness [Recovered/Resolved]
  - Dehydration [Recovered/Resolved]
  - Headache [Not Recovered/Not Resolved]
  - Fatigue [Not Recovered/Not Resolved]
  - Seizure [Recovered/Resolved]

NARRATIVE: CASE EVENT DATE: 20140903
